FAERS Safety Report 4965865-3 (Version None)
Quarter: 2006Q2

REPORT INFORMATION
  Report Type: 
  Country: None (occurrence: None)
  Receive Date: 20060406
  Receipt Date: 20060406
  Transmission Date: 20061013
  Serious: Yes (Death, Life-Threatening, Hospitalization)
  Sender: FDA-Public Use
  Company Number: None

PATIENT
  Age: 51 Year
  Sex: Female
  Weight: 49.8957 kg

DRUGS (1)
  1. ZOLOFT [Suspect]
     Indication: DEPRESSION
     Dosage: 25 MG   TWICE   PO
     Route: 048
     Dates: start: 20051213, end: 20051215

REACTIONS (4)
  - COMPLETED SUICIDE [None]
  - DROWNING [None]
  - FEELING ABNORMAL [None]
  - INSOMNIA [None]
